FAERS Safety Report 18534145 (Version 2)
Quarter: 2020Q4

REPORT INFORMATION
  Report Type: Spontaneous
  Country: JP (occurrence: JP)
  Receive Date: 20201123
  Receipt Date: 20201211
  Transmission Date: 20210114
  Serious: Yes (Life-Threatening, Hospitalization, Other)
  Sender: FDA-Public Use
  Company Number: JP-JNJFOC-A-CH2020-201550

PATIENT
  Age: 82 Year
  Sex: Female
  Weight: 48.3 kg

DRUGS (2)
  1. TRACLEER [Suspect]
     Active Substance: BOSENTAN
     Indication: SCLERODERMA ASSOCIATED DIGITAL ULCER
     Dosage: 125 MG, BID
     Route: 048
     Dates: start: 20200120, end: 20200131
  2. TRACLEER [Suspect]
     Active Substance: BOSENTAN
     Indication: ULCER
     Route: 048

REACTIONS (2)
  - Pulmonary oedema [Recovering/Resolving]
  - Cardiac failure acute [Unknown]

NARRATIVE: CASE EVENT DATE: 20200131
